FAERS Safety Report 17794740 (Version 1)
Quarter: 2020Q2

REPORT INFORMATION
  Report Type: Report from Study
  Country: ZA (occurrence: ZA)
  Receive Date: 20200515
  Receipt Date: 20200515
  Transmission Date: 20200714
  Serious: Yes (Death)
  Sender: FDA-Public Use
  Company Number: ZA-ASTRAZENECA-2020SE64196

PATIENT
  Age: 7 Month
  Sex: Female

DRUGS (3)
  1. SYNAGIS [Suspect]
     Active Substance: PALIVIZUMAB
     Indication: PREMATURE BABY
     Dosage: 54 MG EVERY 28 DAYS
     Route: 065
     Dates: start: 20200130, end: 2020
  2. SYNAGIS [Suspect]
     Active Substance: PALIVIZUMAB
     Indication: BRONCHOPULMONARY DYSPLASIA
     Dosage: 54 MG EVERY 28 DAYS
     Route: 065
     Dates: start: 20200130, end: 2020
  3. SYNAGIS [Suspect]
     Active Substance: PALIVIZUMAB
     Indication: TRISOMY 21
     Dosage: 54 MG EVERY 28 DAYS
     Route: 065
     Dates: start: 20200130, end: 2020

REACTIONS (1)
  - Death [Fatal]

NARRATIVE: CASE EVENT DATE: 20200509
